FAERS Safety Report 13876821 (Version 3)
Quarter: 2017Q4

REPORT INFORMATION
  Report Type: Spontaneous
  Country: US (occurrence: US)
  Receive Date: 20170817
  Receipt Date: 20171012
  Transmission Date: 20180320
  Serious: No
  Sender: FDA-Public Use
  Company Number: US-BIOGEN-2017BI00446814

PATIENT
  Age: 11 Year
  Sex: Male
  Weight: 47.67 kg

DRUGS (6)
  1. ALBUTEROL. [Concomitant]
     Active Substance: ALBUTEROL
     Indication: PRODUCT USED FOR UNKNOWN INDICATION
     Route: 065
  2. SPINRAZA [Suspect]
     Active Substance: NUSINERSEN
     Dosage: SECOND DOSE
     Route: 037
     Dates: start: 20170426
  3. SPINRAZA [Suspect]
     Active Substance: NUSINERSEN
     Dosage: THIRD DOSE (DELAYED)
     Route: 037
     Dates: start: 20170517
  4. SPINRAZA [Suspect]
     Active Substance: NUSINERSEN
     Indication: SPINAL MUSCULAR ATROPHY
     Dosage: FIRST DOSE
     Route: 037
     Dates: start: 20170412
  5. SPINRAZA [Suspect]
     Active Substance: NUSINERSEN
     Dosage: FOURTH DOSE
     Route: 037
     Dates: start: 20170614
  6. SPINRAZA [Suspect]
     Active Substance: NUSINERSEN
     Dosage: FIFTH DOSE
     Route: 037
     Dates: start: 20170927

REACTIONS (2)
  - Loss of control of legs [Unknown]
  - Therapeutic response shortened [Not Recovered/Not Resolved]

NARRATIVE: CASE EVENT DATE: 201708
